FAERS Safety Report 6108552-0 (Version None)
Quarter: 2009Q1

REPORT INFORMATION
  Report Type: 
  Country: None (occurrence: None)
  Receive Date: 20090309
  Receipt Date: 20090226
  Transmission Date: 20090719
  Serious: Yes (Hospitalization)
  Sender: FDA-Public Use
  Company Number: PHHY2008JP30145

PATIENT
  Age: 37 Year
  Sex: Male

DRUGS (7)
  1. SIMULECT [Suspect]
     Indication: RENAL TRANSPLANT
     Dosage: 20 MG, ONCE/SINGLE
     Route: 042
     Dates: start: 20080314, end: 20080314
  2. SIMULECT [Suspect]
     Indication: IMMUNOSUPPRESSION
     Dosage: 20 MG, ONCE/SINGLE
     Route: 042
     Dates: start: 20080318, end: 20080318
  3. CELLCEPT [Suspect]
     Indication: RENAL TRANSPLANT
     Dosage: 1500 MG/DAY
     Route: 048
     Dates: start: 20080229
  4. PLASMAPHERESIS [Suspect]
     Dosage: THREE TIMES DAY
  5. PROGRAF [Suspect]
     Indication: RENAL TRANSPLANT
     Dosage: 10 MG/DAY
     Route: 048
     Dates: start: 20080314
  6. PROGRAF [Suspect]
     Indication: IMMUNOSUPPRESSION
  7. MEDROL [Suspect]
     Indication: RENAL TRANSPLANT
     Dosage: 08 MG/DAY
     Route: 048
     Dates: start: 20080229

REACTIONS (4)
  - HERPES SIMPLEX [None]
  - MENINGITIS ASEPTIC [None]
  - PLEOCYTOSIS [None]
  - RASH [None]
